FAERS Safety Report 8300471-4 (Version None)
Quarter: 2012Q2

REPORT INFORMATION
  Report Type: 
  Country: None (occurrence: None)
  Receive Date: 20120420
  Receipt Date: 20120410
  Transmission Date: 20120825
  Serious: Yes (Hospitalization)
  Sender: FDA-Public Use
  Company Number: DE-CELGENEUS-062-21660-12031374

PATIENT
  Age: 75 Year
  Sex: Female
  Weight: 78 kg

DRUGS (11)
  1. SIMVASTATIN [Concomitant]
     Dosage: 10 MILLIGRAM
     Route: 065
  2. ABRAXANE [Suspect]
     Route: 041
     Dates: start: 20120412
  3. CAPECITABINE [Suspect]
     Dosage: 6000 MILLIGRAM
     Route: 048
     Dates: start: 20120315, end: 20120318
  4. CAPECITABINE [Suspect]
     Indication: BREAST CANCER
     Dosage: 8000 MILLIGRAM
     Route: 048
     Dates: start: 20120223, end: 20120307
  5. LEVOTHYROXINE SODIUM [Concomitant]
     Dosage: 50 MICROGRAM
     Route: 065
  6. ABRAXANE [Suspect]
     Indication: BREAST CANCER
     Route: 041
     Dates: start: 20120223, end: 20120315
  7. DELIX [Concomitant]
     Route: 065
  8. CAPECITABINE [Suspect]
     Route: 048
     Dates: start: 20120412
  9. RAMIPRIL [Concomitant]
     Dosage: 2.5 MILLIGRAM
     Route: 065
  10. BISOPROLOL FUMARATE [Concomitant]
     Dosage: 5 MILLIGRAM
     Route: 065
  11. ACETYLSALICYLIC ACID SRT [Concomitant]
     Dosage: 100 MILLIGRAM
     Route: 065

REACTIONS (3)
  - SYNCOPE [None]
  - DIARRHOEA [None]
  - INFECTION [None]
